FAERS Safety Report 21365251 (Version 1)
Quarter: 2022Q3

REPORT INFORMATION
  Report Type: Spontaneous
  Country: US (occurrence: US)
  Receive Date: 20220922
  Receipt Date: 20220922
  Transmission Date: 20221027
  Serious: Yes (Other)
  Sender: FDA-Public Use
  Company Number: US-FreseniusKabi-FK202212858

PATIENT
  Age: 77 Year
  Sex: Male

DRUGS (1)
  1. HEPARIN SODIUM\SODIUM CHLORIDE [Suspect]
     Active Substance: HEPARIN SODIUM\SODIUM CHLORIDE
     Indication: Product used for unknown indication
     Dosage: HEPARIN 25,000 UNIT/0.45 PERCENT NS 250 ML
     Dates: start: 20220513

REACTIONS (1)
  - Heparin-induced thrombocytopenia [Unknown]
